FAERS Safety Report 8153982-9 (Version None)
Quarter: 2012Q1

REPORT INFORMATION
  Report Type: 
  Country: None (occurrence: None)
  Receive Date: 20120221
  Receipt Date: 20120221
  Transmission Date: 20120608
  Serious: Yes (Other)
  Sender: FDA-Public Use
  Company Number: None

PATIENT
  Age: 65 Year
  Sex: Male
  Weight: 95.254 kg

DRUGS (1)
  1. LOSARTAN POTASSIUM AND HYDROCHLOROTHIAZIDE [Suspect]
     Indication: HYPERTENSION
     Dosage: 100-25
     Route: 048
     Dates: start: 20111215, end: 20120212

REACTIONS (4)
  - PRODUCT SUBSTITUTION ISSUE [None]
  - DEAFNESS UNILATERAL [None]
  - TINNITUS [None]
  - HYPERHIDROSIS [None]
